FAERS Safety Report 11089684 (Version 3)
Quarter: 2015Q3

REPORT INFORMATION
  Report Type: Spontaneous
  Country: US (occurrence: US)
  Receive Date: 20150505
  Receipt Date: 20150715
  Transmission Date: 20151125
  Serious: Yes (Other)
  Sender: FDA-Public Use
  Company Number: US-ROCHE-1572210

PATIENT
  Age: 41 Year
  Sex: Female

DRUGS (7)
  1. XOLAIR [Suspect]
     Active Substance: OMALIZUMAB
     Indication: CHRONIC SPONTANEOUS URTICARIA
     Route: 058
     Dates: start: 20111031, end: 20141201
  2. XYZAL [Concomitant]
     Active Substance: LEVOCETIRIZINE DIHYDROCHLORIDE
     Indication: BLOOD COPPER
     Route: 048
     Dates: start: 201409
  3. SINGULAIR [Concomitant]
     Active Substance: MONTELUKAST SODIUM
     Indication: BLOOD COPPER
     Route: 048
     Dates: start: 201409
  4. XANAX [Concomitant]
     Active Substance: ALPRAZOLAM
     Indication: ANXIETY
     Route: 048
     Dates: start: 20140101
  5. DIAMOX SEQUELS [Concomitant]
     Active Substance: ACETAZOLAMIDE
     Indication: MASS
     Route: 048
     Dates: start: 20140101
  6. TAGAMET [Concomitant]
     Active Substance: CIMETIDINE
     Route: 065
  7. DOXEPIN [Concomitant]
     Active Substance: DOXEPIN
     Dosage: INCREASE BY 1 TALET Q3-4 DATS TO A MAX DOSE OF 100 MG QHS
     Route: 065

REACTIONS (3)
  - Anaphylactic reaction [Recovered/Resolved]
  - Wheezing [Unknown]
  - Throat tightness [Recovered/Resolved]

NARRATIVE: CASE EVENT DATE: 20141031
